FAERS Safety Report 9419350 (Version 1)
Quarter: 2013Q3

REPORT INFORMATION
  Report Type: Spontaneous
  Country: US (occurrence: US)
  Receive Date: 20130725
  Receipt Date: 20130725
  Transmission Date: 20140515
  Serious: No
  Sender: FDA-Public Use
  Company Number: US-GLAXOSMITHKLINE-A1019073A

PATIENT
  Age: 49 Year
  Sex: Female

DRUGS (17)
  1. LAMICTAL [Suspect]
     Dosage: 50MG PER DAY
     Route: 048
     Dates: start: 20130305
  2. LASIX [Concomitant]
  3. XANAX [Concomitant]
  4. PLAVIX [Concomitant]
  5. WELLBUTRIN [Concomitant]
  6. ALBUTEROL [Concomitant]
  7. FLOVENT [Concomitant]
  8. CYCLOBENZAPRINE [Concomitant]
  9. INSULIN [Concomitant]
  10. XALATAN [Concomitant]
  11. NITROSTAT [Concomitant]
  12. MECLIZINE [Concomitant]
  13. SYNTHROID [Concomitant]
  14. SPIRONOLACTONE [Concomitant]
  15. VASOTEC [Concomitant]
  16. PROPRANOLOL [Concomitant]
  17. MIRTAZAPINE [Concomitant]

REACTIONS (1)
  - Weight increased [Not Recovered/Not Resolved]
